FAERS Safety Report 6013752-4 (Version None)
Quarter: 2008Q4

REPORT INFORMATION
  Report Type: 
  Country: None (occurrence: None)
  Receive Date: 20081219
  Receipt Date: 20081210
  Transmission Date: 20090506
  Serious: Yes (Hospitalization)
  Sender: FDA-Public Use
  Company Number: B0549919A

PATIENT
  Age: 82 Year
  Sex: Female
  Weight: 74 kg

DRUGS (15)
  1. ARIXTRA [Suspect]
     Indication: DRUG USE FOR UNKNOWN INDICATION
     Route: 058
     Dates: start: 20081003, end: 20081020
  2. ALLOPURINOL [Suspect]
     Dosage: 1UNIT PER DAY
     Route: 048
  3. COUMADIN [Suspect]
     Indication: PROPHYLAXIS
     Dosage: 5MG TWICE PER DAY
     Route: 048
  4. SIMVASTATIN [Suspect]
     Dosage: 1UNIT PER DAY
     Route: 048
  5. CITALOPRAM [Suspect]
     Indication: DEPRESSION
     Dosage: 1UNIT PER DAY
     Route: 048
  6. FUROSEMIDE [Concomitant]
     Route: 065
  7. MEDIATOR [Concomitant]
     Route: 065
  8. SPIRONOLACTONE [Concomitant]
     Route: 065
  9. DILTIAZEM [Concomitant]
     Route: 065
  10. APIDRA [Concomitant]
     Route: 065
  11. LANTUS [Concomitant]
     Route: 065
  12. ZOPICLONE [Concomitant]
     Route: 065
  13. TRIVASTAL [Concomitant]
     Route: 065
  14. TRANSIPEG [Concomitant]
     Route: 065
  15. ARIMIDEX [Concomitant]
     Route: 065

REACTIONS (8)
  - CONJUNCTIVAL DISCOLOURATION [None]
  - FALL [None]
  - HAEMATOMA [None]
  - INFLAMMATION OF WOUND [None]
  - NORMOCHROMIC NORMOCYTIC ANAEMIA [None]
  - RENAL FAILURE [None]
  - SERUM FERRITIN DECREASED [None]
  - WOUND HAEMORRHAGE [None]
